FAERS Safety Report 9916581 (Version 2)
Quarter: 2014Q2

REPORT INFORMATION
  Report Type: Spontaneous
  Country: US (occurrence: US)
  Receive Date: 20140221
  Receipt Date: 20140512
  Transmission Date: 20141212
  Serious: Yes (Hospitalization)
  Sender: FDA-Public Use
  Company Number: US-BAYER-2014-027058

PATIENT
  Age: 28 Year
  Sex: Female
  Weight: 78.01 kg

DRUGS (3)
  1. MIRENA [Suspect]
     Indication: CONTRACEPTION
     Dosage: 20 MCG/24HR, CONT
     Route: 015
     Dates: start: 20070213, end: 20070926
  2. ORTHO TRI-CYCLEN LO [Concomitant]
  3. LEVOFLOXACIN [Concomitant]

REACTIONS (6)
  - Device dislocation [None]
  - Abdominal pain [None]
  - Device dislocation [None]
  - Stress [None]
  - Injury [None]
  - Pelvic pain [None]
